FAERS Safety Report 8162196-8 (Version None)
Quarter: 2012Q1

REPORT INFORMATION
  Report Type: 
  Country: None (occurrence: None)
  Receive Date: 20120224
  Receipt Date: 20111230
  Transmission Date: 20120608
  Serious: No
  Sender: FDA-Public Use
  Company Number: US-BRISTOL-MYERS SQUIBB COMPANY-16311284

PATIENT
  Age: 57 Year
  Sex: Male

DRUGS (7)
  1. ABILIFY [Suspect]
     Dosage: DOSE REDUCED TO 5MG/DAY
  2. METFORMIN HCL [Suspect]
  3. LISINOPRIL [Suspect]
     Dosage: IN MORNING
  4. MELOXICAM [Suspect]
     Indication: PAIN
     Dosage: MORNING TABS
  5. COLESTIPOL HYDROCHLORIDE [Suspect]
  6. LEVOTHYROXINE SODIUM [Suspect]
     Dosage: ONCE IN MORNING
  7. ACTOS [Suspect]
     Dosage: TABS

REACTIONS (2)
  - BLOOD GLUCOSE FLUCTUATION [None]
  - VISUAL IMPAIRMENT [None]
